FAERS Safety Report 7203395-9 (Version None)
Quarter: 2010Q4

REPORT INFORMATION
  Report Type: 
  Country: None (occurrence: None)
  Receive Date: 20101220
  Receipt Date: 20101209
  Transmission Date: 20110411
  Serious: Yes (Other)
  Sender: FDA-Public Use
  Company Number: 2010US004872

PATIENT
  Age: 67 Year
  Sex: Female

DRUGS (8)
  1. VESICARE [Suspect]
     Indication: PRODUCT USED FOR UNKNOWN INDICATION
     Dosage: ORAL
     Route: 048
     Dates: start: 20101118, end: 20101124
  2. ALPRAZOLAM [Concomitant]
  3. DIAZEPAM [Concomitant]
  4. SYNTHROID [Concomitant]
  5. TOPROL-XL [Concomitant]
  6. ZANTAC [Concomitant]
  7. PREMARIN [Concomitant]
  8. DOMPERIDONE (DOMPERIDONE) [Concomitant]

REACTIONS (5)
  - ACUTE RESPIRATORY FAILURE [None]
  - APPETITE DISORDER [None]
  - IMPAIRED GASTRIC EMPTYING [None]
  - SOMNOLENCE [None]
  - VAGUS NERVE DISORDER [None]
